FAERS Safety Report 8279402-1 (Version None)
Quarter: 2012Q2

REPORT INFORMATION
  Report Type: 
  Country: None (occurrence: None)
  Receive Date: 20120412
  Receipt Date: 20120201
  Transmission Date: 20120825
  Serious: No
  Sender: FDA-Public Use
  Company Number: US-ASTRAZENECA-2012SE07037

PATIENT
  Sex: Female
  Weight: 63.5 kg

DRUGS (7)
  1. LOPID [Concomitant]
     Indication: HYPERCHOLESTEROLAEMIA
  2. NEXIUM [Suspect]
     Indication: GASTROOESOPHAGEAL REFLUX DISEASE
     Route: 048
  3. SEROQUEL [Suspect]
     Indication: BIPOLAR DISORDER
     Route: 048
  4. SEROQUEL [Suspect]
     Indication: POST-TRAUMATIC STRESS DISORDER
     Route: 048
  5. PROZAC [Concomitant]
     Indication: DEPRESSION
  6. XANAX [Concomitant]
     Indication: PANIC ATTACK
  7. XANAX [Concomitant]
     Indication: ANXIETY

REACTIONS (5)
  - MOOD SWINGS [None]
  - FEELING ABNORMAL [None]
  - OFF LABEL USE [None]
  - DRUG DOSE OMISSION [None]
  - INSOMNIA [None]
